FAERS Safety Report 7980117-5 (Version None)
Quarter: 2011Q4

REPORT INFORMATION
  Report Type: 
  Country: None (occurrence: None)
  Receive Date: 20111214
  Receipt Date: 20111128
  Transmission Date: 20120403
  Serious: Yes (Other)
  Sender: FDA-Public Use
  Company Number: NO-MERCK-1111NOR00010

PATIENT
  Sex: Male

DRUGS (1)
  1. PROSCAR [Suspect]
     Route: 048

REACTIONS (5)
  - FEMINISATION ACQUIRED [None]
  - HYPOGONADISM [None]
  - MENTAL DISORDER [None]
  - SEXUAL DYSFUNCTION [None]
  - LIBIDO DECREASED [None]
